FAERS Safety Report 15076044 (Version 3)
Quarter: 2018Q3

REPORT INFORMATION
  Report Type: Spontaneous
  Country: GB (occurrence: GB)
  Receive Date: 20180627
  Receipt Date: 20180911
  Transmission Date: 20181010
  Serious: Yes (Other)
  Sender: FDA-Public Use
  Company Number: GB-LPDUSPRD-20181054

PATIENT
  Age: 73 Year
  Sex: Female
  Weight: 45 kg

DRUGS (5)
  1. CALCICHEW [Concomitant]
     Active Substance: CALCIUM CARBONATE
     Dosage: 1 DOSAGE FORMS
     Route: 048
  2. RENAVIT [Concomitant]
     Dosage: 1 DOSAGE FORMS
     Route: 048
  3. VENOFER [Suspect]
     Active Substance: IRON SUCROSE
     Dosage: 200 MG, STAT
     Route: 041
     Dates: start: 20180606, end: 20180606
  4. RAMIPRIL. [Concomitant]
     Active Substance: RAMIPRIL
     Dosage: 10 MG
     Route: 048
  5. ALFACALCIDOL [Concomitant]
     Active Substance: ALFACALCIDOL
     Dosage: 500 MCG
     Route: 048

REACTIONS (4)
  - Altered state of consciousness [Unknown]
  - Hypotension [Recovered/Resolved]
  - Syncope [Unknown]
  - Overdose [Unknown]

NARRATIVE: CASE EVENT DATE: 20180606
